FAERS Safety Report 17650052 (Version 1)
Quarter: 2020Q2

REPORT INFORMATION
  Report Type: Spontaneous
  Country: US (occurrence: US)
  Receive Date: 20200408
  Receipt Date: 20200408
  Transmission Date: 20200713
  Serious: No
  Sender: FDA-Public Use
  Company Number: None

PATIENT
  Age: 39 Year
  Sex: Female
  Weight: 73.8 kg

DRUGS (6)
  1. L-METHYLFOLATE [Concomitant]
     Active Substance: LEVOMEFOLIC ACID
  2. LAMICTAL [Concomitant]
     Active Substance: LAMOTRIGINE
  3. PROTONIX [Concomitant]
     Active Substance: PANTOPRAZOLE SODIUM
  4. TYLENOL [Concomitant]
     Active Substance: ACETAMINOPHEN
  5. CITALOPRAM (GENERIC FOR CELEXA) [Suspect]
     Active Substance: CITALOPRAM HYDROBROMIDE
     Indication: DEPRESSION
     Dosage: ?          QUANTITY:1 TABLET(S);?
     Route: 048
     Dates: start: 20180501
  6. PRAZOSIN. [Concomitant]
     Active Substance: PRAZOSIN

REACTIONS (15)
  - Photophobia [None]
  - Affective disorder [None]
  - Restlessness [None]
  - Feeling abnormal [None]
  - Fear [None]
  - Dyskinesia [None]
  - Depression [None]
  - Condition aggravated [None]
  - Nightmare [None]
  - Withdrawal syndrome [None]
  - Crying [None]
  - Thinking abnormal [None]
  - Irritability [None]
  - Oversensing [None]
  - Product complaint [None]

NARRATIVE: CASE EVENT DATE: 20200408
